FAERS Safety Report 10285982 (Version 1)
Quarter: 2014Q3

REPORT INFORMATION
  Report Type: Spontaneous
  Country: CA (occurrence: CA)
  Receive Date: 20140709
  Receipt Date: 20140709
  Transmission Date: 20150326
  Serious: Yes (Hospitalization, Other)
  Sender: FDA-Public Use
  Company Number: CA-ROCHE-1431104

PATIENT
  Age: 80 Year
  Sex: Female

DRUGS (9)
  1. TECTA [Concomitant]
     Active Substance: PANTOPRAZOLE MAGNESIUM
  2. RITUXAN [Suspect]
     Active Substance: RITUXIMAB
     Route: 042
  3. PREDNISONE. [Concomitant]
     Active Substance: PREDNISONE
  4. VITAMIN C [Concomitant]
     Active Substance: ASCORBIC ACID
  5. LASIX [Concomitant]
     Active Substance: FUROSEMIDE
  6. RITUXAN [Suspect]
     Active Substance: RITUXIMAB
     Indication: CHRONIC LYMPHOCYTIC LEUKAEMIA
     Route: 065
     Dates: start: 2009
  7. DETROL LA [Concomitant]
     Active Substance: TOLTERODINE TARTRATE
  8. TYLENOL ARTHRITIS PAIN [Concomitant]
     Active Substance: ACETAMINOPHEN
  9. GABAPENTIN. [Concomitant]
     Active Substance: GABAPENTIN

REACTIONS (3)
  - Immune thrombocytopenic purpura [Unknown]
  - Neuropathy peripheral [Unknown]
  - Spleen disorder [Unknown]

NARRATIVE: CASE EVENT DATE: 201406
